FAERS Safety Report 14425357 (Version 1)
Quarter: 2018Q1

REPORT INFORMATION
  Report Type: Spontaneous
  Country: RU (occurrence: RU)
  Receive Date: 20180123
  Receipt Date: 20180123
  Transmission Date: 20180509
  Serious: Yes (Hospitalization)
  Sender: FDA-Public Use
  Company Number: RU-ASTRAZENECA-2018SE08951

PATIENT
  Age: 47 Year
  Sex: Male
  Weight: 110 kg

DRUGS (6)
  1. BRILINTA [Suspect]
     Active Substance: TICAGRELOR
     Indication: MYOCARDIAL INFARCTION
     Route: 048
     Dates: start: 201704
  2. CANDESARTAN. [Concomitant]
     Active Substance: CANDESARTAN
  3. CARDIOMAGNYL [Concomitant]
     Active Substance: ASPIRIN\MAGNESIUM HYDROXIDE
  4. ATORIS [Concomitant]
     Active Substance: ATORVASTATIN CALCIUM
  5. BETALOC ZOK [Concomitant]
     Active Substance: METOPROLOL SUCCINATE
  6. CARDICET [Concomitant]

REACTIONS (2)
  - Coronary artery stenosis [Unknown]
  - Myocardial infarction [Recovered/Resolved]

NARRATIVE: CASE EVENT DATE: 201706
